FAERS Safety Report 9282722 (Version 2)
Quarter: 2013Q2

REPORT INFORMATION
  Report Type: Spontaneous
  Country: US (occurrence: None)
  Receive Date: 20111123
  Receipt Date: 20130419
  Transmission Date: 20140414
  Serious: Yes (Hospitalization)
  Sender: FDA-Public Use
  Company Number: 54973 SAE043

PATIENT
  Age: 7 Year
  Sex: Female

DRUGS (1)
  1. QUIT NITS [Suspect]
     Indication: LICE INFESTATION
     Dosage: SHAMPOO  TREATMENTS

REACTIONS (1)
  - Convulsion [None]
